FAERS Safety Report 11794325 (Version 1)
Quarter: 2015Q4

REPORT INFORMATION
  Report Type: Report from Study
  Country: US (occurrence: US)
  Receive Date: 20151202
  Receipt Date: 20151202
  Transmission Date: 20160305
  Serious: Yes (Hospitalization, Other)
  Sender: FDA-Public Use
  Company Number: US-TEVA-610869USA

PATIENT
  Age: 55 Year
  Sex: Female

DRUGS (18)
  1. CARBOPLATIN (BLINDED) [Suspect]
     Active Substance: CARBOPLATIN
     Indication: TRIPLE NEGATIVE BREAST CANCER
     Route: 042
     Dates: start: 20150624, end: 20150826
  2. DOCUSATE SODIUM- STOOL SOFTENER [Concomitant]
     Indication: CONSTIPATION
     Route: 048
  3. MIRALAX (BISAOODYL) [Concomitant]
     Indication: CONSTIPATION
     Dosage: AS REQUIRED
     Route: 048
     Dates: start: 20150805
  4. BUPROPION. [Concomitant]
     Active Substance: BUPROPION
     Indication: DEPRESSION
     Dosage: 300 MILLIGRAM DAILY;
     Route: 048
     Dates: start: 2013
  5. PACLITAXEL (OPEN LABEL) [Suspect]
     Active Substance: PACLITAXEL
     Indication: TRIPLE NEGATIVE BREAST CANCER
     Route: 042
     Dates: start: 20150624, end: 20150729
  6. ONDANSETRON [Concomitant]
     Active Substance: ONDANSETRON
     Indication: NAUSEA
     Route: 048
  7. CYCLOPHOSPHAMIDE (OPEN LABEL) [Suspect]
     Active Substance: CYCLOPHOSPHAMIDE
     Indication: TRIPLE NEGATIVE BREAST CANCER
     Dosage: 4-21 DAY CYLES DURING CHEMO SEGMENT 2
     Route: 042
     Dates: start: 20150916
  8. ABT-888 VELIPARIB (BLINDED) [Suspect]
     Active Substance: VELIPARIB
     Route: 048
     Dates: start: 20150624, end: 20150826
  9. LAMOTRIGINE. [Concomitant]
     Active Substance: LAMOTRIGINE
     Indication: DEPRESSION
     Dosage: 100 MILLIGRAM DAILY;
     Route: 048
     Dates: start: 2012
  10. EMLA CREAM ( LIDOCAINE, PRILOCAINE) [Concomitant]
     Indication: LOCAL ANAESTHESIA
     Route: 062
     Dates: start: 20150624
  11. LORAZEPAM. [Concomitant]
     Active Substance: LORAZEPAM
     Indication: ANXIETY
     Dosage: AS REQUIRED
     Route: 048
     Dates: start: 20150624
  12. LISINOPRIL HCTZ [Concomitant]
     Active Substance: HYDROCHLOROTHIAZIDE\LISINOPRIL
     Indication: HYPERTENSION
     Dosage: 20/12.5 MG
     Route: 048
     Dates: start: 2012
  13. CIPRO [Concomitant]
     Active Substance: CIPROFLOXACIN HYDROCHLORIDE
     Indication: URINARY TRACT INFECTION
     Dosage: 1000 MILLIGRAM DAILY;
     Route: 048
     Dates: start: 20150901, end: 20150911
  14. DOXORUBICIN (OPEN LABEL) [Suspect]
     Active Substance: DOXORUBICIN
     Indication: TRIPLE NEGATIVE BREAST CANCER
     Dosage: 4- 21 DAY CYCLES DURING CHEMOTHERAPY SEGMENT 2
     Route: 042
     Dates: start: 20150916
  15. PROMETHAZINE [Concomitant]
     Active Substance: PROMETHAZINE\PROMETHAZINE HYDROCHLORIDE
     Indication: NAUSEA
     Dosage: AS REQUIRED
     Route: 048
     Dates: start: 20150626
  16. DULCOLAX (BISCODYL) [Concomitant]
     Indication: CONSTIPATION
     Dosage: 5 MILLIGRAM DAILY;
     Route: 048
     Dates: start: 20150805
  17. BENADRYL ( DIPHENHYDRAMINE HYDROCHLORIDE) [Concomitant]
     Indication: PRURITUS
     Dosage: 25-50 MG AS REQUIRED
     Route: 048
     Dates: start: 20150812
  18. METFORMIN [Concomitant]
     Active Substance: METFORMIN HYDROCHLORIDE
     Indication: DIABETES MELLITUS
     Dosage: 5/500 MG
     Route: 048
     Dates: start: 201506

REACTIONS (7)
  - Pruritus [None]
  - Dehydration [Recovered/Resolved]
  - Urinary tract infection [None]
  - Nausea [Recovering/Resolving]
  - Abdominal pain [Recovering/Resolving]
  - Vomiting [Recovering/Resolving]
  - Blood creatinine increased [None]

NARRATIVE: CASE EVENT DATE: 20150924
